FAERS Safety Report 11986494 (Version 1)
Quarter: 2016Q1

REPORT INFORMATION
  Report Type: Spontaneous
  Country: US (occurrence: US)
  Receive Date: 20160202
  Receipt Date: 20160202
  Transmission Date: 20160526
  Serious: No
  Sender: FDA-Public Use
  Company Number: US-UCBSA-2014021800

PATIENT
  Age: 26 Year

DRUGS (1)
  1. KEPPRA [Suspect]
     Active Substance: LEVETIRACETAM
     Indication: EPILEPSY
     Dosage: UNKNOWN

REACTIONS (6)
  - Increased appetite [Unknown]
  - Anxiety [Unknown]
  - Muscle twitching [Unknown]
  - Tinnitus [Unknown]
  - Headache [Unknown]
  - Muscle spasms [Unknown]
